FAERS Safety Report 7205914-5 (Version None)
Quarter: 2011Q1

REPORT INFORMATION
  Report Type: 
  Country: None (occurrence: None)
  Receive Date: 20110102
  Receipt Date: 20101228
  Transmission Date: 20110831
  Serious: Yes (Hospitalization, Other)
  Sender: FDA-Public Use
  Company Number: US-BRISTOL-MYERS SQUIBB COMPANY-15418270

PATIENT
  Age: 40 Year
  Sex: Male

DRUGS (5)
  1. ABILIFY [Suspect]
     Indication: AFFECTIVE DISORDER
     Dosage: 15MG DOSE INCREASED TO 20MG DURATION:1.5- 2 MONTHS
     Route: 048
     Dates: start: 20100831
  2. REMERON [Concomitant]
  3. ABILIFY [Suspect]
     Indication: PSYCHOTIC DISORDER
     Dosage: 15MG DOSE INCREASED TO 20MG DURATION:1.5- 2 MONTHS
     Route: 048
     Dates: start: 20100831
  4. NEURONTIN [Concomitant]
  5. ABILIFY [Suspect]
     Indication: SCHIZOAFFECTIVE DISORDER
     Dosage: 15MG DOSE INCREASED TO 20MG DURATION:1.5- 2 MONTHS
     Route: 048
     Dates: start: 20100831

REACTIONS (7)
  - DEHYDRATION [None]
  - RHABDOMYOLYSIS [None]
  - RENAL FAILURE ACUTE [None]
  - COGNITIVE DISORDER [None]
  - TORTICOLLIS [None]
  - COMA [None]
  - ACUTE RESPIRATORY FAILURE [None]
